FAERS Safety Report 23951122 (Version 1)
Quarter: 2024Q2

REPORT INFORMATION
  Report Type: Spontaneous
  Country: US (occurrence: None)
  Receive Date: 20240607
  Receipt Date: 20240607
  Transmission Date: 20240715
  Serious: Yes (Hospitalization)
  Sender: FDA-Public Use
  Company Number: None

PATIENT
  Sex: Female
  Weight: 70 kg

DRUGS (6)
  1. CYCLOPHOSPHAMIDE [Suspect]
     Active Substance: CYCLOPHOSPHAMIDE
     Dates: start: 20240214
  2. DOXORUBICIN HYDROCHLORIDE [Concomitant]
  3. PEGFILGRASTIM [Concomitant]
     Active Substance: PEGFILGRASTIM
  4. PREDNISONE [Concomitant]
     Active Substance: PREDNISONE
  5. RITUXIMAB [Concomitant]
     Active Substance: RITUXIMAB
  6. VINCRISTINE SULFATE [Concomitant]

REACTIONS (5)
  - Toxicity to various agents [None]
  - Diarrhoea [None]
  - Asthenia [None]
  - Blood creatinine increased [None]
  - Blood urea increased [None]

NARRATIVE: CASE EVENT DATE: 20240602
